FAERS Safety Report 4659854-6 (Version None)
Quarter: 2005Q2

REPORT INFORMATION
  Report Type: 
  Country: None (occurrence: None)
  Receive Date: 20050502
  Receipt Date: 20050322
  Transmission Date: 20051028
  Serious: Yes (Hospitalization)
  Sender: FDA-Public Use
  Company Number: 200511393US

PATIENT
  Age: 59 Year
  Sex: Female
  Weight: 84.1 kg

DRUGS (8)
  1. KETEK [Suspect]
     Indication: SINUSITIS
     Dosage: 800 MG QD PO
     Route: 048
     Dates: start: 20050212
  2. PREVACID [Concomitant]
  3. FLUTICASONE PROPIONATE (FLONASE) [Concomitant]
  4. GLUCOSAMINE HYDROCHLORIDE [Concomitant]
  5. CHONDROITIN SULFATE SODIUM [Concomitant]
  6. MANGANESE ASCORBATE [Concomitant]
  7. ASCORBIC ACID (COSAMIN DS) [Concomitant]
  8. VITAMINS [Concomitant]

REACTIONS (5)
  - ANAPHYLACTIC REACTION [None]
  - ANGIONEUROTIC OEDEMA [None]
  - DIZZINESS [None]
  - SWELLING FACE [None]
  - SWOLLEN TONGUE [None]
